FAERS Safety Report 4377375-5 (Version None)
Quarter: 2004Q2

REPORT INFORMATION
  Report Type: 
  Country: None (occurrence: None)
  Receive Date: 20040609
  Receipt Date: 20040504
  Transmission Date: 20050107
  Serious: No
  Sender: FDA-Public Use
  Company Number: 2004212207US

PATIENT
  Age: 44 Year
  Sex: Female

DRUGS (8)
  1. BEXTRA [Suspect]
     Indication: ARTHRITIS
     Dosage: 10 MG, BID, UNKNOWN
     Dates: start: 20040504
  2. ASPIRIN [Concomitant]
  3. GLUCOVANCE [Concomitant]
  4. TRANXENE [Concomitant]
  5. BENTYL [Concomitant]
  6. BENICAR [Concomitant]
  7. PROTONIX [Concomitant]
  8. PRAVACHOL [Concomitant]

REACTIONS (4)
  - DIZZINESS [None]
  - FATIGUE [None]
  - INCOHERENT [None]
  - TONGUE PARALYSIS [None]
